FAERS Safety Report 12131654 (Version 2)
Quarter: 2016Q1

REPORT INFORMATION
  Report Type: Spontaneous
  Country: US (occurrence: US)
  Receive Date: 20160301
  Receipt Date: 20160324
  Transmission Date: 20160526
  Serious: No
  Sender: FDA-Public Use
  Company Number: US-JNJFOC-20160119889

PATIENT
  Age: 40 Year
  Sex: Female
  Weight: 59.42 kg

DRUGS (1)
  1. REMICADE [Suspect]
     Active Substance: INFLIXIMAB
     Indication: PSORIATIC ARTHROPATHY
     Route: 042
     Dates: start: 201511, end: 20151204

REACTIONS (7)
  - Somnolence [Recovered/Resolved]
  - Poor quality sleep [Recovering/Resolving]
  - Fatigue [Recovered/Resolved]
  - Feeling jittery [Recovering/Resolving]
  - Weight increased [Unknown]
  - Anxiety [Recovering/Resolving]
  - Energy increased [Not Recovered/Not Resolved]

NARRATIVE: CASE EVENT DATE: 201511
